FAERS Safety Report 8660502 (Version 2)
Quarter: 2012Q4

REPORT INFORMATION
  Report Type: 
  Country: FR (occurrence: FR)
  Receive Date: 20120711
  Receipt Date: 20121015
  Transmission Date: 20130627
  Serious: Yes (Hospitalization)
  Sender: FDA-Public Use
  Company Number: FR-BRISTOL-MYERS SQUIBB COMPANY-16738544

PATIENT
  Age: 61 Year
  Sex: Female

DRUGS (14)
  1. ABILIFY TABS 10 MG [Suspect]
     Dosage: Stopped on unk date.
     Route: 048
  2. HALDOL [Suspect]
     Dosage: Stopped on unk date.
     Route: 048
  3. ARANESP [Suspect]
  4. QUETIAPINE [Suspect]
     Route: 048
  5. NOVONORM [Concomitant]
  6. RENAGEL [Concomitant]
  7. BICARBONATE [Concomitant]
  8. MOPRAL [Concomitant]
  9. APROVEL [Concomitant]
  10. KARDEGIC [Concomitant]
  11. LASILIX [Concomitant]
  12. SPIRIVA [Concomitant]
  13. BRONCHODUAL [Concomitant]
  14. AMLOR [Concomitant]

REACTIONS (1)
  - Pulmonary embolism [Recovered/Resolved]
